FAERS Safety Report 10154742 (Version 2)
Quarter: 2014Q3

REPORT INFORMATION
  Report Type: Spontaneous
  Country: US (occurrence: None)
  Receive Date: 20140502
  Receipt Date: 20140926
  Transmission Date: 20150326
  Serious: Yes (Life-Threatening, Hospitalization)
  Sender: FDA-Public Use
  Company Number: SP07607

PATIENT
  Age: 66 Year
  Sex: Female
  Weight: 112.49 kg

DRUGS (1)
  1. XIFAXAN [Suspect]
     Active Substance: RIFAXIMIN
     Indication: HEPATIC ENCEPHALOPATHY
     Dosage: 1100 MG (550 MG) 2 IN 1 D ORAL
     Route: 048
     Dates: start: 2011, end: 201401

REACTIONS (7)
  - Syncope [None]
  - Confusional state [None]
  - Loss of consciousness [None]
  - Therapy cessation [None]
  - Dyskinesia [None]
  - Ammonia increased [None]
  - Speech disorder [None]

NARRATIVE: CASE EVENT DATE: 20140220
